FAERS Safety Report 23365134 (Version 1)
Quarter: 2024Q1

REPORT INFORMATION
  Report Type: Spontaneous
  Country: DE (occurrence: DE)
  Receive Date: 20240104
  Receipt Date: 20240104
  Transmission Date: 20240409
  Serious: Yes (Hospitalization, Other)
  Sender: FDA-Public Use
  Company Number: DE-ROCHE-3427185

PATIENT
  Age: 35 Year
  Sex: Female
  Weight: 61 kg

DRUGS (5)
  1. LEUCOVORIN CALCIUM [Suspect]
     Active Substance: LEUCOVORIN CALCIUM
     Indication: Neoplasm malignant
     Dosage: 672 MILLIGRAM, EVERY 2 WEEKS (DATE OF MOST RECENT DOSE PRIOR TO SAE: 25/APR/2023)
     Route: 042
     Dates: start: 20230127, end: 20230425
  2. IRINOTECAN [Suspect]
     Active Substance: IRINOTECAN
     Indication: Neoplasm malignant
     Dosage: 277 MILLIGRAM, BIWEEKLY
     Route: 042
     Dates: start: 20230127, end: 20230425
  3. OXALIPLATIN [Suspect]
     Active Substance: OXALIPLATIN
     Indication: Neoplasm malignant
     Dosage: 143 MILLIGRAM, EVERY 2 WEEKS
     Route: 042
     Dates: start: 20230127, end: 20230425
  4. BEVACIZUMAB [Suspect]
     Active Substance: BEVACIZUMAB
     Indication: Neoplasm malignant
     Dosage: 310 MILLIGRAM, EVERY 2 WEEKS
     Route: 042
     Dates: start: 20230228, end: 20230425
  5. FLUOROURACIL [Suspect]
     Active Substance: FLUOROURACIL
     Indication: Neoplasm malignant
     Dosage: 5376 MILLIGRAM, EVERY 2 WEEKS,D1 AND D2
     Route: 042
     Dates: start: 20230127, end: 20230425

REACTIONS (1)
  - Enterocolitis infectious [Recovered/Resolved]

NARRATIVE: CASE EVENT DATE: 20230505
